FAERS Safety Report 11750750 (Version 1)
Quarter: 2015Q4

REPORT INFORMATION
  Report Type: Spontaneous
  Country: NZ (occurrence: NZ)
  Receive Date: 20151118
  Receipt Date: 20151118
  Transmission Date: 20160304
  Serious: Yes (Other)
  Sender: FDA-Public Use
  Company Number: NZ-TEVA-607989ISR

PATIENT
  Age: 53 Year
  Sex: Female

DRUGS (1)
  1. COPAXONE [Suspect]
     Active Substance: GLATIRAMER ACETATE
     Route: 058

REACTIONS (5)
  - Lipodystrophy acquired [Unknown]
  - Injection site mass [Unknown]
  - Limb discomfort [Unknown]
  - Injection site pruritus [Unknown]
  - Injection site erythema [Unknown]
